FAERS Safety Report 20545362 (Version 1)
Quarter: 2022Q1

REPORT INFORMATION
  Report Type: Spontaneous
  Country: US (occurrence: None)
  Receive Date: 20220302
  Receipt Date: 20220302
  Transmission Date: 20220423
  Serious: Yes (Hospitalization)
  Sender: FDA-Public Use
  Company Number: None

PATIENT
  Sex: Female

DRUGS (4)
  1. ADCIRCA [Suspect]
     Active Substance: TADALAFIL
     Route: 048
     Dates: start: 20210113
  2. ADCIRCA [Suspect]
     Active Substance: TADALAFIL
  3. AMBRISENTAN [Suspect]
     Active Substance: AMBRISENTAN
  4. AMIODARONE [Suspect]
     Active Substance: AMIODARONE

REACTIONS (1)
  - Dyspnoea [None]
